FAERS Safety Report 11519672 (Version 1)
Quarter: 2015Q3

REPORT INFORMATION
  Report Type: Spontaneous
  Country: GB (occurrence: GB)
  Receive Date: 20150918
  Receipt Date: 20150918
  Transmission Date: 20151125
  Serious: Yes (Other)
  Sender: FDA-Public Use
  Company Number: GB-009507513-1509GBR008518

PATIENT
  Age: 23 Year
  Sex: Female

DRUGS (5)
  1. PROTOPIC [Concomitant]
     Active Substance: TACROLIMUS
  2. NEXPLANON [Suspect]
     Active Substance: ETONOGESTREL
     Indication: CONTRACEPTION
  3. BETNOVATE C [Concomitant]
  4. EUMOVATE [Concomitant]
     Active Substance: CLOBETASONE BUTYRATE
  5. ZEROBASE [Concomitant]

REACTIONS (3)
  - Thrombosis [Not Recovered/Not Resolved]
  - Blister [Not Recovered/Not Resolved]
  - Eczema [Not Recovered/Not Resolved]
